FAERS Safety Report 8208993-1 (Version None)
Quarter: 2012Q1

REPORT INFORMATION
  Report Type: 
  Country: None (occurrence: None)
  Receive Date: 20120314
  Receipt Date: 20120306
  Transmission Date: 20120608
  Serious: Yes (Hospitalization, Disabling, Other)
  Sender: FDA-Public Use
  Company Number: GB-ELI_LILLY_AND_COMPANY-GB201108007858

PATIENT
  Age: 65 Year
  Sex: Female

DRUGS (10)
  1. VICTOZA [Concomitant]
     Indication: HYPERGLYCAEMIA
     Dosage: 1.2 MG, QD
     Route: 058
     Dates: start: 20091101, end: 20110802
  2. ACETAMINOPHEN [Concomitant]
     Dosage: 1 G, QID
  3. GLIMEPIRIDE [Concomitant]
     Dosage: 2 MG, QD
  4. METFORMIN HCL [Concomitant]
  5. BYETTA [Suspect]
     Indication: HYPERGLYCAEMIA
     Dosage: 5 UG, UNK
     Route: 058
     Dates: start: 20081001, end: 20081101
  6. OMEPRAZOLE [Concomitant]
     Dosage: 10 MG, QD
  7. SIMVASTATIN [Concomitant]
  8. TRAMADOL HCL [Concomitant]
     Dosage: 200 MG, BID
  9. CIPROFLOXACIN HCL [Concomitant]
     Dosage: 500 MG, UNKNOWN
  10. LEVOTHYROXINE SODIUM [Concomitant]
     Dosage: 75 UG, QD

REACTIONS (2)
  - DEEP VEIN THROMBOSIS [None]
  - METASTASES TO LIVER [None]
